FAERS Safety Report 17206471 (Version 1)
Quarter: 2019Q4

REPORT INFORMATION
  Report Type: Spontaneous
  Country: US (occurrence: US)
  Receive Date: 20191227
  Receipt Date: 20191227
  Transmission Date: 20200122
  Serious: No
  Sender: FDA-Public Use
  Company Number: US-VIFOR (INTERNATIONAL) INC.-VIT-2019-15932

PATIENT
  Sex: Male

DRUGS (12)
  1. ATORVASTATIN [Concomitant]
     Active Substance: ATORVASTATIN
  2. VITAMIN D [Concomitant]
     Active Substance: VITAMIN D NOS
  3. FOLIC ACID. [Concomitant]
     Active Substance: FOLIC ACID
  4. GABAPENTIN. [Concomitant]
     Active Substance: GABAPENTIN
  5. NATEGLINIDE. [Concomitant]
     Active Substance: NATEGLINIDE
  6. DOK [Concomitant]
     Active Substance: DOCUSATE SODIUM
  7. ELIQUIS [Concomitant]
     Active Substance: APIXABAN
  8. METOPROL TAR [Concomitant]
  9. VELTASSA [Suspect]
     Active Substance: PATIROMER
     Indication: HYPERKALAEMIA
     Route: 048
     Dates: start: 20190201
  10. TRADJENTA [Concomitant]
     Active Substance: LINAGLIPTIN
  11. WARFARIN [Concomitant]
     Active Substance: WARFARIN
  12. SODIUM BI CAR [Concomitant]

REACTIONS (2)
  - No adverse event [Unknown]
  - Product dose omission [Not Recovered/Not Resolved]
